FAERS Safety Report 20354202 (Version 11)
Quarter: 2022Q3

REPORT INFORMATION
  Report Type: Report from Study
  Country: US (occurrence: US)
  Receive Date: 20220120
  Receipt Date: 20220805
  Transmission Date: 20221027
  Serious: No
  Sender: FDA-Public Use
  Company Number: US-NOVARTISTESTPH-NVSC2022US011313

PATIENT
  Sex: Female
  Weight: 74.83 kg

DRUGS (9)
  1. TREPROSTINIL [Suspect]
     Active Substance: TREPROSTINIL
     Indication: Pulmonary arterial hypertension
     Dosage: 11 NANOGRAM PER KILOGRAM, CONT (11 NG/KG/MIN)
     Route: 058
     Dates: start: 20220110
  2. TREPROSTINIL [Suspect]
     Active Substance: TREPROSTINIL
     Dosage: 14 NANOGRAM PER KILOGRAM, CONT (14 NG/KG/MIN)
     Route: 058
  3. TREPROSTINIL [Suspect]
     Active Substance: TREPROSTINIL
     Dosage: 18 NANOGRAM PER KILOGRAM, CONT (18 NG/KG/MIN)
     Route: 058
  4. TREPROSTINIL [Suspect]
     Active Substance: TREPROSTINIL
     Dosage: 25 NANOGRAM PER KILOGRAM, CONT (25 NG/KG/MIN)
     Route: 058
  5. TREPROSTINIL [Suspect]
     Active Substance: TREPROSTINIL
     Dosage: 28 NANOGRAM PER KILOGRAM, CONT (28 NG/KG/MIN)
     Route: 058
     Dates: start: 20220110
  6. TREPROSTINIL [Suspect]
     Active Substance: TREPROSTINIL
     Dosage: UNK
     Route: 065
  7. REMODULIN [Suspect]
     Active Substance: TREPROSTINIL
     Indication: Pulmonary arterial hypertension
     Dosage: 0.030 (?G/KG), CONT
     Route: 058
     Dates: start: 20220507
  8. TADALAFIL [Concomitant]
     Active Substance: TADALAFIL
     Indication: Product used for unknown indication
     Dosage: UNK
     Route: 065
  9. AMBRISENTAN [Concomitant]
     Active Substance: AMBRISENTAN
     Indication: Product used for unknown indication
     Dosage: UNK
     Route: 065

REACTIONS (24)
  - Abdominal distension [Unknown]
  - Mobility decreased [Unknown]
  - Malaise [Unknown]
  - Chest discomfort [Unknown]
  - Device infusion issue [Unknown]
  - Arthralgia [Unknown]
  - Gait disturbance [Unknown]
  - Fluid retention [Unknown]
  - Abdominal pain upper [Unknown]
  - Dyspnoea [Unknown]
  - Diarrhoea [Unknown]
  - Headache [Unknown]
  - Nausea [Unknown]
  - Pain in extremity [Unknown]
  - Fatigue [Unknown]
  - Asthenia [Unknown]
  - Dizziness [Unknown]
  - Vomiting [Unknown]
  - Infusion site pain [Unknown]
  - Pain [Unknown]
  - Abdominal pain [Unknown]
  - Infusion site swelling [Unknown]
  - Infusion site discomfort [Unknown]
  - Infusion site extravasation [Unknown]
